FAERS Safety Report 7079642-3 (Version None)
Quarter: 2010Q4

REPORT INFORMATION
  Report Type: 
  Country: None (occurrence: None)
  Receive Date: 20101102
  Receipt Date: 20101015
  Transmission Date: 20110411
  Serious: Yes (Death, Other)
  Sender: FDA-Public Use
  Company Number: US-AMGEN LTD.-QUU440417

PATIENT

DRUGS (3)
  1. NPLATE [Suspect]
     Indication: IDIOPATHIC THROMBOCYTOPENIC PURPURA
     Dosage: 2 A?G/KG, UNK
     Dates: start: 20100113, end: 20100205
  2. NPLATE [Suspect]
     Dates: start: 20100113
  3. CORTICOSTEROID NOS [Concomitant]
     Dosage: UNK UNK, UNK
     Dates: start: 20050901

REACTIONS (3)
  - PLATELET COUNT INCREASED [None]
  - ROAD TRAFFIC ACCIDENT [None]
  - THROMBOCYTOPENIA [None]
